FAERS Safety Report 6182753-8 (Version None)
Quarter: 2009Q2

REPORT INFORMATION
  Report Type: 
  Country: None (occurrence: None)
  Receive Date: 20090507
  Receipt Date: 20090428
  Transmission Date: 20091009
  Serious: Yes (Other)
  Sender: FDA-Public Use
  Company Number: US-NOVOPROD-283541

PATIENT
  Age: 7 Day
  Sex: Female
  Weight: 3.7 kg

DRUGS (12)
  1. NOVOSEVEN [Suspect]
     Indication: PROPHYLAXIS
     Dosage: 600 UG, 2 INJECTIONS 21 HOURS APART
     Dates: start: 20060702
  2. ALPROSTADIL [Concomitant]
     Indication: DRUG USE FOR UNKNOWN INDICATION
     Dates: start: 20060630
  3. HYDROCORTISONE [Concomitant]
     Indication: DRUG USE FOR UNKNOWN INDICATION
     Dates: start: 20060630
  4. PEPCID [Concomitant]
     Indication: DRUG USE FOR UNKNOWN INDICATION
     Dates: start: 20060630
  5. VERSED [Concomitant]
     Indication: DRUG USE FOR UNKNOWN INDICATION
     Dates: start: 20060630
  6. MILRINONE [Concomitant]
     Indication: DRUG USE FOR UNKNOWN INDICATION
     Dates: start: 20060630
  7. EPINEPHRINE [Concomitant]
     Indication: DRUG USE FOR UNKNOWN INDICATION
     Dates: start: 20060630
  8. DOPAMINE HCL [Concomitant]
     Indication: DRUG USE FOR UNKNOWN INDICATION
     Dates: start: 20060630
  9. FENTANYL [Concomitant]
     Indication: DRUG USE FOR UNKNOWN INDICATION
     Dates: start: 20060630
  10. RESERPINE [Concomitant]
     Indication: DRUG USE FOR UNKNOWN INDICATION
     Dates: start: 20060630
  11. NESIRITIDE [Concomitant]
     Dates: start: 20060630
  12. TPN [Concomitant]

REACTIONS (1)
  - CATHETER THROMBOSIS [None]
